FAERS Safety Report 9225777 (Version 1)
Quarter: 2013Q2

REPORT INFORMATION
  Report Type: Spontaneous
  Country: US (occurrence: US)
  Receive Date: 20130411
  Receipt Date: 20130411
  Transmission Date: 20140414
  Serious: Yes (Other)
  Sender: FDA-Public Use
  Company Number: US-TEVA-397059USA

PATIENT
  Sex: Female
  Weight: 119.86 kg

DRUGS (1)
  1. AZITHROMYCIN [Suspect]
     Indication: INFECTION PROPHYLAXIS
     Route: 048

REACTIONS (7)
  - Hypertension [Unknown]
  - Adverse drug reaction [Unknown]
  - Somnolence [Unknown]
  - Headache [Unknown]
  - Malaise [Unknown]
  - Vomiting [Unknown]
  - Nausea [Unknown]
